FAERS Safety Report 9400410 (Version 2)
Quarter: 2013Q3

REPORT INFORMATION
  Report Type: Report from Study
  Country: AU (occurrence: AU)
  Receive Date: 20130715
  Receipt Date: 20130827
  Transmission Date: 20140515
  Serious: Yes (Hospitalization)
  Sender: FDA-Public Use
  Company Number: AU-ELI_LILLY_AND_COMPANY-AU200602001707

PATIENT
  Age: 3 Year
  Sex: Female
  Weight: 16.6 kg

DRUGS (3)
  1. SOMATROPIN [Suspect]
     Indication: HYPOPITUITARISM
     Dosage: 0.42 MG, UNK
     Route: 058
     Dates: start: 20010712
  2. HYDROCORTISONE [Concomitant]
     Indication: HYPOPITUITARISM
     Dosage: 16 MG, DAILY (1/D)
     Route: 048
     Dates: start: 20010712
  3. THYROXINE [Concomitant]
     Indication: HYPOPITUITARISM
     Dosage: 50 UG, DAILY (1/D)
     Route: 048
     Dates: start: 20010716

REACTIONS (2)
  - Viral infection [Recovered/Resolved]
  - Hypoglycaemia [Recovered/Resolved]
